FAERS Safety Report 25817963 (Version 2)
Quarter: 2025Q4

REPORT INFORMATION
  Report Type: Spontaneous
  Country: JP (occurrence: JP)
  Receive Date: 20250918
  Receipt Date: 20251104
  Transmission Date: 20260117
  Serious: Yes (Death, Life-Threatening)
  Sender: MERCK SHARP & DOHME LLC
  Company Number: JP-009507513-2329449

PATIENT
  Age: 51 Year
  Sex: Male
  Weight: 92 kg

DRUGS (2)
  1. KEYTRUDA [Suspect]
     Active Substance: PEMBROLIZUMAB
     Indication: Malignant neoplasm of renal pelvis
     Route: 041
     Dates: start: 20250821, end: 20250821
  2. PADCEV [Suspect]
     Active Substance: ENFORTUMAB VEDOTIN-EJFV
     Indication: Malignant neoplasm of renal pelvis
     Dosage: ADMINISTERED ON DAY 1 AND DAY 8
     Route: 041
     Dates: start: 20250821, end: 20250829

REACTIONS (8)
  - Tumour lysis syndrome [Fatal]
  - Diarrhoea [Recovering/Resolving]
  - Renal impairment [Fatal]
  - Acidosis [Fatal]
  - Blood uric acid increased [Fatal]
  - Blood pressure decreased [Fatal]
  - Cardiac arrest [Fatal]
  - Hypocalcaemia [Fatal]

NARRATIVE: CASE EVENT DATE: 20250829
